FAERS Safety Report 13701326 (Version 2)
Quarter: 2017Q3

REPORT INFORMATION
  Report Type: Spontaneous
  Country: JP (occurrence: JP)
  Receive Date: 20170629
  Receipt Date: 20170718
  Transmission Date: 20171127
  Serious: Yes (Hospitalization)
  Sender: FDA-Public Use
  Company Number: PHHY2017JP091685

PATIENT
  Age: 26 Year
  Sex: Female
  Weight: 50 kg

DRUGS (6)
  1. HIRUDOID [Concomitant]
     Active Substance: GLYCOSAMINOGLYCANS
     Indication: ACNE
     Dosage: UNK
     Route: 061
     Dates: start: 20170415, end: 20170428
  2. EURAX [Concomitant]
     Active Substance: CROTAMITON
     Indication: PRODUCT USED FOR UNKNOWN INDICATION
     Dosage: UNK
     Route: 061
     Dates: start: 20170429
  3. BEPIO [Suspect]
     Active Substance: BENZOYL PEROXIDE
     Indication: XERODERMA
  4. HIRUDOID [Concomitant]
     Active Substance: GLYCOSAMINOGLYCANS
     Indication: XERODERMA
  5. BEPIO [Suspect]
     Active Substance: BENZOYL PEROXIDE
     Indication: ACNE
     Dosage: UNK UNK, QD
     Route: 061
     Dates: start: 20170415, end: 20170428
  6. FAMVIR [Suspect]
     Active Substance: FAMCICLOVIR
     Indication: HERPES ZOSTER
     Dosage: UNK
     Route: 048
     Dates: start: 20170430

REACTIONS (1)
  - Dermatitis contact [Recovering/Resolving]

NARRATIVE: CASE EVENT DATE: 20170428
